FAERS Safety Report 4700248-2 (Version None)
Quarter: 2005Q2

REPORT INFORMATION
  Report Type: 
  Country: None (occurrence: None)
  Receive Date: 20050623
  Receipt Date: 20050614
  Transmission Date: 20051028
  Serious: Yes (Death, Life-Threatening, Hospitalization)
  Sender: FDA-Public Use
  Company Number: ZONI002153

PATIENT
  Age: 19 Year
  Sex: Female
  Weight: 56.8 kg

DRUGS (3)
  1. ZONEGRAN [Suspect]
     Indication: PARTIAL SEIZURES
     Dosage: SEE IMAGE
     Route: 048
     Dates: start: 20040501, end: 20050301
  2. ZONEGRAN [Suspect]
     Indication: PARTIAL SEIZURES
     Dosage: SEE IMAGE
     Route: 048
     Dates: start: 20050301, end: 20050501
  3. ORTHO TRI-CYCLEN LO [Suspect]
     Indication: MENSTRUAL DISORDER
     Dosage: 1 DOSAGE FORMS, 1 IN 1 D, ORAL
     Route: 048
     Dates: start: 20041101, end: 20050501

REACTIONS (16)
  - ABDOMINAL DISCOMFORT [None]
  - ANOREXIA [None]
  - BLOOD FIBRINOGEN DECREASED [None]
  - BRAIN DEATH [None]
  - BRAIN OEDEMA [None]
  - CARDIAC ARREST [None]
  - CHEST DISCOMFORT [None]
  - FALL [None]
  - HAEMORRHAGE [None]
  - HYPOCOAGULABLE STATE [None]
  - LIVER FUNCTION TEST ABNORMAL [None]
  - LOSS OF CONSCIOUSNESS [None]
  - MALAISE [None]
  - PROTEIN S DEFICIENCY [None]
  - PULMONARY EMBOLISM [None]
  - TROPONIN INCREASED [None]
